FAERS Safety Report 7262742-2 (Version None)
Quarter: 2011Q1

REPORT INFORMATION
  Report Type: 
  Country: None (occurrence: None)
  Receive Date: 20110130
  Receipt Date: 20100910
  Transmission Date: 20110831
  Serious: No
  Sender: FDA-Public Use
  Company Number: US-ABBOTT-10P-163-0670607-00

PATIENT
  Age: 72 Year
  Sex: Male

DRUGS (12)
  1. METFORMIN [Concomitant]
     Indication: DIABETES MELLITUS
  2. ALLOPURINOL [Concomitant]
     Indication: GOUT
  3. PREDNISONE [Concomitant]
     Indication: RHEUMATOID ARTHRITIS
     Dosage: 5MG ONE DAY, THEN 7.5MG THE NEXT DAY
  4. FLOMAX [Concomitant]
     Indication: PROSTATIC DISORDER
  5. TEKTURNA [Concomitant]
     Indication: BLOOD PRESSURE
  6. WARFARIN [Concomitant]
     Indication: PRODUCT USED FOR UNKNOWN INDICATION
     Dosage: 5MG DAILY EXCEP FOR WED + SUN WHEN HE TAKES 7.5MG
  7. INSULIN [Concomitant]
     Indication: DIABETES MELLITUS
  8. BYSTOLIC [Concomitant]
     Indication: BLOOD PRESSURE
  9. BENICAR [Concomitant]
     Indication: BLOOD PRESSURE
  10. LASIX [Concomitant]
     Indication: BLOOD PRESSURE
  11. HUMIRA [Suspect]
     Indication: RHEUMATOID ARTHRITIS
     Dates: start: 20100701
  12. POTASSIUM [Concomitant]
     Indication: ELECTROLYTE SUBSTITUTION THERAPY
     Dosage: DAILY

REACTIONS (1)
  - ARTHRALGIA [None]
